FAERS Safety Report 24554173 (Version 1)
Quarter: 2024Q4

REPORT INFORMATION
  Report Type: Spontaneous
  Country: US (occurrence: US)
  Receive Date: 20241028
  Receipt Date: 20241028
  Transmission Date: 20250115
  Serious: Yes (Other)
  Sender: TEVA
  Company Number: US-TEVA-VS-3257109

PATIENT

DRUGS (1)
  1. TRAMADOL [Suspect]
     Active Substance: TRAMADOL
     Indication: Product used for unknown indication
     Route: 065

REACTIONS (6)
  - Lipoedema [Unknown]
  - Pain [Unknown]
  - Feeling abnormal [Unknown]
  - Product use issue [Unknown]
  - Leukaemia [Unknown]
  - Insomnia [Unknown]
